FAERS Safety Report 14121998 (Version 1)
Quarter: 2017Q4

REPORT INFORMATION
  Report Type: Report from Study
  Country: KR (occurrence: KR)
  Receive Date: 20171024
  Receipt Date: 20171024
  Transmission Date: 20180321
  Serious: Yes (Death, Other)
  Sender: FDA-Public Use
  Company Number: KR-MYLANLABS-2017M1066122

PATIENT
  Age: 39 Year
  Sex: Female
  Weight: 40 kg

DRUGS (1)
  1. FOSPHENYTOIN [Suspect]
     Active Substance: FOSPHENYTOIN\FOSPHENYTOIN SODIUM
     Indication: STATUS EPILEPTICUS
     Dosage: 1500 MGL; ADMINISTERED AT INFUSION RATE OF 50 MG/MIN
     Route: 041

REACTIONS (3)
  - Hypotension [Fatal]
  - Bradycardia [Fatal]
  - Arrhythmia [Fatal]
